FAERS Safety Report 5899752-3 (Version None)
Quarter: 2008Q3

REPORT INFORMATION
  Report Type: 
  Country: None (occurrence: None)
  Receive Date: 20080917
  Receipt Date: 20080904
  Transmission Date: 20090109
  Serious: Yes (Other)
  Sender: FDA-Public Use
  Company Number: THYM-1000738

PATIENT
  Age: 39 Year
  Sex: Male

DRUGS (14)
  1. THYMOGLOBULIN [Suspect]
     Indication: KIDNEY TRANSPLANT REJECTION
     Dosage: 75 MG, QD, INTRAVENOUS
     Route: 042
     Dates: start: 20080729, end: 20080730
  2. CELLCEPT [Concomitant]
  3. PROGRAF [Concomitant]
  4. PREDNISONE [Concomitant]
  5. SEPTRA [Concomitant]
  6. VALCYTE [Concomitant]
  7. NEXIUM (ESOMEPRAZOLE SODIUM) [Concomitant]
  8. REGLAN [Concomitant]
  9. SODIUM BICARBONATE IN PLASTIC CONTAINER [Concomitant]
  10. STEROIDS (STEROIDS) [Concomitant]
  11. ASPIRIN [Concomitant]
  12. ACETAMINOPHEN [Concomitant]
  13. CARVEDILOL [Concomitant]
  14. BENADRYL [Concomitant]

REACTIONS (2)
  - BLOOD GLUCOSE DECREASED [None]
  - HYPERGLYCAEMIA [None]
